FAERS Safety Report 8054830-8 (Version None)
Quarter: 2012Q1

REPORT INFORMATION
  Report Type: 
  Country: None (occurrence: None)
  Receive Date: 20120119
  Receipt Date: 20120116
  Transmission Date: 20120608
  Serious: No
  Sender: FDA-Public Use
  Company Number: US-PFIZER INC-2011296747

PATIENT
  Sex: Female

DRUGS (2)
  1. DILANTIN [Suspect]
     Indication: CONVULSION
     Dosage: 50 MG, UNK
     Route: 048
     Dates: start: 20110601
  2. PHENOBARBITAL TAB [Concomitant]
     Indication: CONVULSION
     Dosage: UNK

REACTIONS (2)
  - ERUCTATION [None]
  - DYSPHAGIA [None]
